FAERS Safety Report 20805227 (Version 1)
Quarter: 2022Q2

REPORT INFORMATION
  Report Type: Report from Study
  Country: PR (occurrence: PR)
  Receive Date: 20220509
  Receipt Date: 20220509
  Transmission Date: 20220721
  Serious: Yes (Hospitalization)
  Sender: FDA-Public Use
  Company Number: PR-ABBVIE-22K-131-4382927-00

PATIENT
  Age: 76 Year
  Sex: Female
  Weight: 104.42 kg

DRUGS (4)
  1. RINVOQ [Suspect]
     Active Substance: UPADACITINIB
     Indication: Rheumatoid arthritis
     Route: 048
     Dates: start: 20190906
  2. mRNA-1273 (NON-ABBVIE) [Concomitant]
     Indication: COVID-19 immunisation
     Dosage: 1ST DOSE
     Route: 030
     Dates: start: 20210428, end: 20210428
  3. mRNA-1273 (NON-ABBVIE) [Concomitant]
     Dosage: 2ND DOSE
     Route: 030
     Dates: start: 20210526, end: 20210526
  4. mRNA-1273 (NON-ABBVIE) [Concomitant]
     Dosage: 3RD DOSE
     Route: 030
     Dates: start: 20211130, end: 20211130

REACTIONS (2)
  - Diarrhoea [Unknown]
  - Urinary tract infection [Not Recovered/Not Resolved]

NARRATIVE: CASE EVENT DATE: 20211201
